FAERS Safety Report 8171077-5 (Version None)
Quarter: 2012Q1

REPORT INFORMATION
  Report Type: 
  Country: None (occurrence: None)
  Receive Date: 20120228
  Receipt Date: 20120223
  Transmission Date: 20120608
  Serious: Yes (Death)
  Sender: FDA-Public Use
  Company Number: PHEH2012US004518

PATIENT
  Sex: Male

DRUGS (11)
  1. DOXYCILIN [Concomitant]
     Dosage: 150 MG, UNK
  2. BACTRIM [Concomitant]
     Dosage: 400 MG, UNK
  3. PRILOSEC [Concomitant]
     Dosage: 20 MG, UNK
  4. BACTRIM [Concomitant]
     Dosage: 80 MG, UNK
  5. COLACE [Concomitant]
  6. AFINITOR [Suspect]
     Dosage: 5 MG, EVERY DAY
  7. VOTRIENT [Suspect]
     Dosage: 200 MG, TWO TAB EVERY DAY
  8. DECADRON [Concomitant]
     Dosage: 0.5 MG, UNK
  9. SPRYCEL [Concomitant]
  10. VITAMIN D [Concomitant]
     Dosage: 500000 U, UNK
  11. TARCEVA [Concomitant]
     Dosage: 100 MG/H, UNK

REACTIONS (1)
  - DEATH [None]
